FAERS Safety Report 11811902 (Version 2)
Quarter: 2015Q4

REPORT INFORMATION
  Report Type: Spontaneous
  Country: US (occurrence: US)
  Receive Date: 20151208
  Receipt Date: 20151219
  Transmission Date: 20160305
  Serious: Yes (Other)
  Sender: FDA-Public Use
  Company Number: US-CELGENEUS-USA-2015120525

PATIENT
  Sex: Male
  Weight: 112.59 kg

DRUGS (2)
  1. REVLIMID [Suspect]
     Active Substance: LENALIDOMIDE
     Indication: PLASMA CELL MYELOMA
     Dosage: 10 MILLIGRAM
     Route: 048
     Dates: start: 20130222
  2. BLOOD [Concomitant]
     Active Substance: WHOLE BLOOD
     Indication: TRANSFUSION
     Route: 041

REACTIONS (1)
  - Blood count abnormal [Unknown]
